FAERS Safety Report 8884196 (Version 1)
Quarter: 2012Q4

REPORT INFORMATION
  Report Type: 
  Country: US (occurrence: US)
  Receive Date: 20121102
  Receipt Date: 20121102
  Transmission Date: 20130627
  Serious: No
  Sender: FDA-Public Use
  Company Number: US-ASTRAZENECA-2012SE13395

PATIENT
  Age: 73 Year
  Sex: Female
  Weight: 68 kg

DRUGS (8)
  1. CRESTOR [Suspect]
     Route: 048
     Dates: start: 20120101
  2. CRESTOR [Suspect]
     Route: 048
     Dates: end: 20120218
  3. CRESTOR [Suspect]
     Route: 048
     Dates: start: 20120226
  4. GLYPIZIDE [Concomitant]
  5. METOFORMIN [Concomitant]
  6. PLAVIX [Concomitant]
  7. METOPROLOL [Concomitant]
  8. VIT C [Concomitant]

REACTIONS (5)
  - Blood glucose increased [Unknown]
  - Diarrhoea [Unknown]
  - Glycosylated haemoglobin increased [Unknown]
  - Off label use [Unknown]
  - Drug dose omission [Unknown]
